FAERS Safety Report 5128289-4 (Version None)
Quarter: 2006Q4

REPORT INFORMATION
  Report Type: 
  Country: None (occurrence: None)
  Receive Date: 20061011
  Receipt Date: 20060920
  Transmission Date: 20070319
  Serious: Yes (Hospitalization)
  Sender: FDA-Public Use
  Company Number: US200609005214

PATIENT
  Age: 74 Year
  Sex: Male

DRUGS (10)
  1. HUMAN INSULIN  (RDNA ORIGIN)(HUMAN INSULIN  (RDNA ORIGIN) UNKNOWN FORM [Suspect]
     Indication: DIABETES MELLITUS
  2. HUMALOG MIX 75/25 [Suspect]
     Indication: DIABETES MELLITUS
     Dates: start: 20010101
  3. COREG [Concomitant]
  4. DIGOXIN [Concomitant]
  5. FUROSEMIDE [Concomitant]
  6. WARFARIN SODIUM [Concomitant]
  7. ZETIA [Concomitant]
  8. AVANDIA [Concomitant]
  9. LISINOPRIL [Concomitant]
  10. LIBRAX (CHLORDIAZEPOXIDE, CLIDINIUM BROMIDE) [Concomitant]

REACTIONS (4)
  - ABDOMINAL PAIN [None]
  - CARDIAC FAILURE CONGESTIVE [None]
  - DIZZINESS [None]
  - MYOCARDIAL INFARCTION [None]
